FAERS Safety Report 11260827 (Version 4)
Quarter: 2015Q3

REPORT INFORMATION
  Report Type: Spontaneous
  Country: CH (occurrence: DE)
  Receive Date: 20150710
  Receipt Date: 20150826
  Transmission Date: 20151125
  Serious: Yes (Other)
  Sender: FDA-Public Use
  Company Number: CH-LPDUSPRD-20150521

PATIENT
  Age: 44 Year
  Sex: Female
  Weight: 65 kg

DRUGS (6)
  1. FLEA SEEDS [Concomitant]
     Dosage: DOSE NOT PROVIDED
     Route: 065
  2. HOMEOPATHICS (UNSPECIFIED) [Concomitant]
     Dosage: DOSE NOT PROVIDED
     Route: 065
  3. FERINJECT [Suspect]
     Active Substance: FERRIC CARBOXYMALTOSE
     Dosage: 100 MG, 1 IN 1 TOTAL
     Route: 041
     Dates: start: 20150618, end: 20150618
  4. ERGOCALCIFEROL. [Concomitant]
     Active Substance: ERGOCALCIFEROL
     Dosage: DOSE NOT PROVIDED
     Route: 065
  5. NEUREXAN [Concomitant]
     Active Substance: HOMEOPATHICS
     Dosage: DOSE NOT PROVIDED
     Route: 065
  6. FORTAKEHL [Concomitant]
     Dosage: DOSE NOT PROVIDED
     Route: 065

REACTIONS (5)
  - Hypoaesthesia [Unknown]
  - Limb discomfort [Unknown]
  - Paralysis [Unknown]
  - Peripheral coldness [Unknown]
  - Peripheral swelling [Unknown]

NARRATIVE: CASE EVENT DATE: 20150618
